FAERS Safety Report 5964443-7 (Version None)
Quarter: 2008Q4

REPORT INFORMATION
  Report Type: 
  Country: None (occurrence: None)
  Receive Date: 20081122
  Receipt Date: 20081122
  Transmission Date: 20090506
  Serious: Yes (Hospitalization)
  Sender: FDA-Public Use
  Company Number: None

PATIENT
  Sex: Male
  Weight: 69 kg

DRUGS (3)
  1. CAMPTOSAR [Suspect]
     Dosage: 250.9 MG
  2. CISPLATIN [Suspect]
     Dosage: 115.8 MG
  3. ERBITUX [Suspect]
     Dosage: 1737 MG

REACTIONS (1)
  - DEHYDRATION [None]
